FAERS Safety Report 16944755 (Version 3)
Quarter: 2019Q4

REPORT INFORMATION
  Report Type: Spontaneous
  Country: JP (occurrence: JP)
  Receive Date: 20191022
  Receipt Date: 20191109
  Transmission Date: 20200122
  Serious: Yes (Death, Other)
  Sender: FDA-Public Use
  Company Number: JP-ROCHE-2443946

PATIENT
  Age: 75 Year
  Sex: Male

DRUGS (1)
  1. ACTEMRA [Suspect]
     Active Substance: TOCILIZUMAB
     Indication: CASTLEMAN^S DISEASE
     Dosage: DOSAGE IS UNCERTAIN.
     Route: 065

REACTIONS (6)
  - Pyelonephritis fungal [Unknown]
  - Pneumonia staphylococcal [Unknown]
  - Cytomegalovirus pancreatitis [Unknown]
  - Respiratory failure [Fatal]
  - Intentional product use issue [Unknown]
  - Off label use [Unknown]
